FAERS Safety Report 23078634 (Version 1)
Quarter: 2023Q4

REPORT INFORMATION
  Report Type: Report from Study
  Country: IT (occurrence: IT)
  Receive Date: 20231018
  Receipt Date: 20231018
  Transmission Date: 20240110
  Serious: Yes (Life-Threatening, Other)
  Sender: FDA-Public Use
  Company Number: None

PATIENT
  Age: 61 Year
  Sex: Male

DRUGS (7)
  1. FLUOROURACIL [Suspect]
     Active Substance: FLUOROURACIL
     Indication: Colon cancer
     Dosage: FREQUENCY OF ADMINISTRATION: CYCLICAL ROUTE OF ADMINISTRATION: INTRAVENOUS - BOLUS
     Route: 042
     Dates: start: 20230328, end: 20230822
  2. OXALIPLATIN [Suspect]
     Active Substance: OXALIPLATIN
     Indication: Colon cancer
     Dosage: FREQUENCY OF ADMINISTRATION: CYCLICAL
     Route: 042
     Dates: start: 20230328, end: 20230822
  3. BEVACIZUMAB [Suspect]
     Active Substance: BEVACIZUMAB
     Indication: Colon cancer
     Dosage: DOSAGE: 460 UNIT OF MEASUREMENT: MILLIGRAMS FREQUENCY OF ADMINISTRATION:?CYCLICAL
     Route: 042
     Dates: start: 20230328, end: 20230822
  4. NORVASC [Concomitant]
     Active Substance: AMLODIPINE BESYLATE
     Dosage: DOSAGE: 1 UNIT OF MEASUREMENT: DOSAGE UNIT ROUTE OF ADMINISTRATION: ORAL
     Route: 048
  5. ESOMEPRAZOLE [Concomitant]
     Active Substance: ESOMEPRAZOLE
     Dosage: DOSAGE: 20?UNIT OF MEASUREMENT: MILLIGRAMS ?ROUTE OF ADMINISTRATION: ORAL
     Route: 048
     Dates: start: 20210601
  6. EDOXABAN [Concomitant]
     Active Substance: EDOXABAN
     Dosage: DOSAGE: 1 UNIT OF MEASUREMENT: DOSAGE UNIT
     Route: 048
     Dates: start: 20221123
  7. BICTEGRAVIR, EEMTRICITABIN, TENOFOVIR [Concomitant]
     Indication: HIV infection
     Dosage: DOSAGE: 1 UNIT OF MEASUREMENT: DOSAGE UNIT
     Route: 048
     Dates: start: 20210601

REACTIONS (4)
  - Peripheral swelling [Recovered/Resolved]
  - Pruritus [Recovered/Resolved]
  - Hypotension [Recovered/Resolved]
  - Anaphylactic shock [Recovered/Resolved]

NARRATIVE: CASE EVENT DATE: 20230822
